FAERS Safety Report 7744790-9 (Version None)
Quarter: 2011Q3

REPORT INFORMATION
  Report Type: 
  Country: None (occurrence: None)
  Receive Date: 20110912
  Receipt Date: 20110912
  Transmission Date: 20111222
  Serious: Yes (Life-Threatening)
  Sender: FDA-Public Use
  Company Number: None

PATIENT
  Sex: Male

DRUGS (1)
  1. SEVOFLURANE [Suspect]
     Indication: ANAESTHESIA PROCEDURE
     Dates: start: 20110812, end: 20110812

REACTIONS (1)
  - HYPERTHERMIA MALIGNANT [None]
